FAERS Safety Report 4688145-2 (Version None)
Quarter: 2005Q2

REPORT INFORMATION
  Report Type: 
  Country: None (occurrence: None)
  Receive Date: 20050610
  Receipt Date: 20050602
  Transmission Date: 20051028
  Serious: Yes (Other)
  Sender: FDA-Public Use
  Company Number: PHBS2005SE07835

PATIENT
  Age: 61 Year
  Sex: Male

DRUGS (1)
  1. ZOMETA [Suspect]
     Route: 042
     Dates: end: 20050210

REACTIONS (2)
  - ASEPTIC NECROSIS BONE [None]
  - BONE LESION [None]
